FAERS Safety Report 18196038 (Version 1)
Quarter: 2020Q3

REPORT INFORMATION
  Report Type: Report from Study
  Country: CA (occurrence: CA)
  Receive Date: 20200825
  Receipt Date: 20200825
  Transmission Date: 20201103
  Serious: Yes (Other)
  Sender: FDA-Public Use
  Company Number: CA-TEVA-2020-CA-1817528

PATIENT
  Age: 9 Year
  Sex: Male

DRUGS (18)
  1. SORAFENIB [Suspect]
     Active Substance: SORAFENIB
     Dosage: 200 MG/M2 DAILY;
     Route: 065
  2. CYTARABINE. [Suspect]
     Active Substance: CYTARABINE
     Route: 065
  3. DAUNORUBICIN [Suspect]
     Active Substance: DAUNORUBICIN
     Indication: ACUTE MYELOID LEUKAEMIA
     Route: 065
  4. SORAFENIB [Suspect]
     Active Substance: SORAFENIB
     Indication: ACUTE MYELOID LEUKAEMIA
     Route: 065
  5. THYMOGLOBULIN [Suspect]
     Active Substance: LAPINE T-LYMPHOCYTE IMMUNE GLOBULIN
     Indication: ACUTE MYELOID LEUKAEMIA
     Route: 065
  6. ETOPOSIDE. [Suspect]
     Active Substance: ETOPOSIDE
     Indication: ACUTE MYELOID LEUKAEMIA
     Route: 065
  7. ETOPOSIDE. [Suspect]
     Active Substance: ETOPOSIDE
     Route: 065
  8. BUSULFAN. [Suspect]
     Active Substance: BUSULFAN
     Indication: ACUTE MYELOID LEUKAEMIA
     Route: 065
  9. CYCLOPHOSPHAMIDE. [Suspect]
     Active Substance: CYCLOPHOSPHAMIDE
     Indication: ACUTE MYELOID LEUKAEMIA
     Route: 065
  10. RYDAPT [Suspect]
     Active Substance: MIDOSTAURIN
     Route: 048
  11. CYTARABINE. [Suspect]
     Active Substance: CYTARABINE
     Indication: ACUTE MYELOID LEUKAEMIA
     Dosage: 2000 MG/M2 DAILY;
     Route: 065
  12. FLUDARABINE [Suspect]
     Active Substance: FLUDARABINE PHOSPHATE
     Indication: ACUTE MYELOID LEUKAEMIA
     Dosage: 30 MG/M2 DAILY;
     Route: 065
  13. CYTARABINE. [Suspect]
     Active Substance: CYTARABINE
     Route: 065
  14. FILGRASTIM [Suspect]
     Active Substance: FILGRASTIM
     Indication: ACUTE MYELOID LEUKAEMIA
     Route: 065
  15. RYDAPT [Suspect]
     Active Substance: MIDOSTAURIN
     Indication: ACUTE MYELOID LEUKAEMIA
     Route: 048
  16. RYDAPT [Suspect]
     Active Substance: MIDOSTAURIN
     Dosage: 30 MG/M2 DAILY;
     Route: 048
  17. CYTARABINE. [Suspect]
     Active Substance: CYTARABINE
     Route: 065
  18. DAUNORUBICIN [Suspect]
     Active Substance: DAUNORUBICIN
     Route: 065

REACTIONS (6)
  - Drug intolerance [Recovered/Resolved with Sequelae]
  - Lymphadenopathy [Recovered/Resolved with Sequelae]
  - Pancytopenia [Recovered/Resolved with Sequelae]
  - Skin toxicity [Recovered/Resolved with Sequelae]
  - Bone marrow failure [Recovered/Resolved with Sequelae]
  - Acute myeloid leukaemia recurrent [Recovered/Resolved with Sequelae]
